FAERS Safety Report 7569983-5 (Version None)
Quarter: 2011Q2

REPORT INFORMATION
  Report Type: 
  Country: None (occurrence: None)
  Receive Date: 20110622
  Receipt Date: 20110622
  Transmission Date: 20111010
  Serious: Yes (Life-Threatening)
  Sender: FDA-Public Use
  Company Number: None

PATIENT
  Age: 50 Year
  Sex: Female
  Weight: 94.3 kg

DRUGS (2)
  1. LOVENOX [Suspect]
  2. INTEGRILIN [Suspect]

REACTIONS (3)
  - HAEMATOMA [None]
  - RETINAL HAEMORRHAGE [None]
  - PETECHIAE [None]
